FAERS Safety Report 17691069 (Version 2)
Quarter: 2020Q2

REPORT INFORMATION
  Report Type: Spontaneous
  Country: US (occurrence: US)
  Receive Date: 20200422
  Receipt Date: 20200422
  Transmission Date: 20200714
  Serious: Yes (Death, Hospitalization)
  Sender: FDA-Public Use
  Company Number: US-CELGENEUS-USA-20200405379

PATIENT
  Age: 81 Year
  Sex: Male

DRUGS (1)
  1. REVLIMID [Suspect]
     Active Substance: LENALIDOMIDE
     Indication: MANTLE CELL LYMPHOMA
     Dosage: 15 MILLIGRAM
     Route: 048
     Dates: start: 20180430, end: 20180531

REACTIONS (7)
  - Dizziness [Unknown]
  - Fall [Unknown]
  - Fatigue [Unknown]
  - Anaemia [Unknown]
  - Leukocytosis [Unknown]
  - Mantle cell lymphoma [Unknown]
  - Death [Fatal]

NARRATIVE: CASE EVENT DATE: 201805
